FAERS Safety Report 8882690 (Version 1)
Quarter: 2012Q4

REPORT INFORMATION
  Report Type: 
  Country: US (occurrence: US)
  Receive Date: 20121102
  Receipt Date: 20121102
  Transmission Date: 20130627
  Serious: No
  Sender: FDA-Public Use
  Company Number: US-ASTRAZENECA-2011SE69542

PATIENT
  Age: 70 Year
  Sex: Male

DRUGS (3)
  1. CRESTOR [Suspect]
     Route: 048
  2. SIMVASTATIN [Concomitant]
  3. PRAVASTATIN [Concomitant]

REACTIONS (4)
  - High density lipoprotein abnormal [Unknown]
  - Low density lipoprotein abnormal [Unknown]
  - Myalgia [Unknown]
  - Drug ineffective [Unknown]
